FAERS Safety Report 5404547-0 (Version None)
Quarter: 2007Q3

REPORT INFORMATION
  Report Type: 
  Country: None (occurrence: None)
  Receive Date: 20070713
  Receipt Date: 20070503
  Transmission Date: 20080115
  Serious: Yes (Hospitalization, Other)
  Sender: FDA-Public Use
  Company Number: US-JNJFOC-20070101087

PATIENT
  Age: 48 Year
  Sex: Female

DRUGS (11)
  1. ORTHO EVRA [Suspect]
     Indication: DRUG USE FOR UNKNOWN INDICATION
     Dosage: TRANSDERMAL
     Route: 062
     Dates: start: 20051201, end: 20060701
  2. PEPCID [Concomitant]
  3. NASONEX [Concomitant]
  4. TYLENOL W/ CODEINE NO. 4 [Concomitant]
  5. IMITREX [Concomitant]
  6. ELADIL (ALL OTHER THERAPEUTIC PRODUCTS) [Concomitant]
  7. NORTRIPTYLINE HCL [Concomitant]
  8. RISPERDAL [Concomitant]
  9. XANAX [Concomitant]
  10. FERROUS SULFATE TAB [Concomitant]
  11. ASCORBIC ACID [Concomitant]

REACTIONS (1)
  - CEREBRAL INFARCTION [None]
